FAERS Safety Report 9848479 (Version 1)
Quarter: 2014Q1

REPORT INFORMATION
  Report Type: Spontaneous
  Country: US (occurrence: None)
  Receive Date: 20140127
  Receipt Date: 20140127
  Transmission Date: 20141002
  Serious: Yes (Other)
  Sender: FDA-Public Use
  Company Number: None

PATIENT
  Age: 52 Year
  Sex: Female

DRUGS (1)
  1. KINERET [Suspect]
     Dosage: 100 MG INJECTABLE SUBCUTANEOUS 057 DAILY
     Route: 058
     Dates: start: 20140110

REACTIONS (6)
  - Rash [None]
  - Pruritus [None]
  - Injection site rash [None]
  - Injection site pruritus [None]
  - Injection site erythema [None]
  - Drug hypersensitivity [None]
